FAERS Safety Report 20197869 (Version 2)
Quarter: 2022Q1

REPORT INFORMATION
  Report Type: Spontaneous
  Country: JP (occurrence: JP)
  Receive Date: 20211217
  Receipt Date: 20220124
  Transmission Date: 20220424
  Serious: Yes (Hospitalization, Other)
  Sender: FDA-Public Use
  Company Number: JP-KYOWAKIRIN-2021AKK020961

PATIENT
  Age: 60 Year
  Sex: Female

DRUGS (7)
  1. PEGFILGRASTIM [Suspect]
     Active Substance: PEGFILGRASTIM
     Indication: Product used for unknown indication
     Dosage: UNK
     Route: 058
     Dates: start: 20211130, end: 20211130
  2. FLUOROURACIL [Concomitant]
     Active Substance: FLUOROURACIL
     Indication: Breast cancer recurrent
     Dosage: UNK
     Route: 041
     Dates: start: 20211129, end: 20211129
  3. FLUOROURACIL [Concomitant]
     Active Substance: FLUOROURACIL
     Dosage: UNK
     Route: 041
     Dates: start: 20211108, end: 20211108
  4. EPIRUBICIN HYDROCHLORIDE [Concomitant]
     Active Substance: EPIRUBICIN HYDROCHLORIDE
     Indication: Breast cancer recurrent
     Dosage: 100 MG
     Route: 041
     Dates: start: 20211129, end: 20211129
  5. EPIRUBICIN HYDROCHLORIDE [Concomitant]
     Active Substance: EPIRUBICIN HYDROCHLORIDE
     Dosage: 100 MG
     Route: 041
     Dates: start: 20211108, end: 20211108
  6. CYCLOPHOSPHAMIDE [Concomitant]
     Active Substance: CYCLOPHOSPHAMIDE
     Indication: Breast cancer recurrent
     Dosage: UNK
     Route: 041
     Dates: start: 20211129, end: 20211129
  7. CYCLOPHOSPHAMIDE [Concomitant]
     Active Substance: CYCLOPHOSPHAMIDE
     Dosage: UNK
     Route: 041
     Dates: start: 20211108, end: 20211108

REACTIONS (3)
  - Febrile neutropenia [Recovered/Resolved]
  - Feeding disorder [Unknown]
  - Pain [Unknown]

NARRATIVE: CASE EVENT DATE: 20211207
